FAERS Safety Report 14283588 (Version 1)
Quarter: 2017Q4

REPORT INFORMATION
  Report Type: Spontaneous
  Country: US (occurrence: None)
  Receive Date: 20171213
  Receipt Date: 20171213
  Transmission Date: 20180321
  Serious: Yes (Other)
  Sender: FDA-Public Use
  Company Number: None

PATIENT
  Age: 36 Year
  Sex: Female

DRUGS (4)
  1. STELARA [Suspect]
     Active Substance: USTEKINUMAB
     Indication: PSORIASIS
     Dosage: 45MG EVERY 12 WEEKS SUBCUT
     Route: 058
     Dates: start: 20170314, end: 201710
  2. DESONIDE. [Concomitant]
     Active Substance: DESONIDE
  3. FOLIC ACID. [Concomitant]
     Active Substance: FOLIC ACID
  4. ESTRADIOL. [Concomitant]
     Active Substance: ESTRADIOL

REACTIONS (3)
  - Pregnancy [None]
  - Therapy non-responder [None]
  - Exposure during pregnancy [None]

NARRATIVE: CASE EVENT DATE: 201710
